FAERS Safety Report 5224025-1 (Version None)
Quarter: 2007Q1

REPORT INFORMATION
  Report Type: 
  Country: None (occurrence: None)
  Receive Date: 20070130
  Receipt Date: 20040223
  Transmission Date: 20070707
  Serious: Yes (Disabling, Other)
  Sender: FDA-Public Use
  Company Number: 2004AP01136

PATIENT
  Age: 68 Year
  Sex: Female

DRUGS (2)
  1. TAMOFEN [Suspect]
     Indication: BREAST CANCER
  2. TAMOFEN [Suspect]
     Indication: METASTATIC NEOPLASM

REACTIONS (1)
  - OPTIC NEUROPATHY [None]
